FAERS Safety Report 23647688 (Version 1)
Quarter: 2024Q1

REPORT INFORMATION
  Report Type: Spontaneous
  Country: DE (occurrence: DE)
  Receive Date: 20240319
  Receipt Date: 20240319
  Transmission Date: 20240410
  Serious: Yes (Life-Threatening, Hospitalization)
  Sender: FDA-Public Use
  Company Number: None

PATIENT
  Age: 72 Year
  Sex: Female
  Weight: 68 kg

DRUGS (18)
  1. CAPECITABINE [Suspect]
     Active Substance: CAPECITABINE
     Indication: Product used for unknown indication
     Route: 048
     Dates: end: 20140728
  2. CAPECITABINE [Suspect]
     Active Substance: CAPECITABINE
     Route: 048
     Dates: start: 20140603, end: 20140616
  3. CAPECITABINE [Suspect]
     Active Substance: CAPECITABINE
     Route: 048
     Dates: start: 20140826, end: 20140908
  4. CAPECITABINE [Suspect]
     Active Substance: CAPECITABINE
     Route: 048
     Dates: start: 20140311, end: 20140324
  5. CAPECITABINE [Suspect]
     Active Substance: CAPECITABINE
     Route: 048
     Dates: start: 20141118, end: 20141201
  6. CAPECITABINE [Suspect]
     Active Substance: CAPECITABINE
     Route: 048
     Dates: start: 20140805, end: 20140818
  7. CAPECITABINE [Suspect]
     Active Substance: CAPECITABINE
     Route: 048
     Dates: start: 20140422, end: 20140505
  8. CAPECITABINE [Suspect]
     Active Substance: CAPECITABINE
     Route: 048
     Dates: start: 20140218, end: 20140303
  9. CAPECITABINE [Suspect]
     Active Substance: CAPECITABINE
     Route: 048
     Dates: start: 20140916, end: 20140929
  10. CAPECITABINE [Suspect]
     Active Substance: CAPECITABINE
     Route: 048
     Dates: start: 20140401, end: 20140414
  11. CAPECITABINE [Suspect]
     Active Substance: CAPECITABINE
     Route: 048
     Dates: start: 20141007, end: 20141020
  12. CAPECITABINE [Suspect]
     Active Substance: CAPECITABINE
     Route: 048
     Dates: start: 20140513, end: 20140526
  13. CAPECITABINE [Suspect]
     Active Substance: CAPECITABINE
     Route: 048
     Dates: start: 20140624, end: 20140707
  14. XELODA [Suspect]
     Active Substance: CAPECITABINE
     Indication: Breast cancer
     Route: 048
     Dates: end: 20141118
  15. XELODA [Suspect]
     Active Substance: CAPECITABINE
     Dosage: DAILY DOSE: 4000 MG MILLIGRAM(S) EVERY DAY
     Route: 048
     Dates: start: 20140311, end: 20140314
  16. XELODA [Suspect]
     Active Substance: CAPECITABINE
     Dosage: DAILY DOSE: 4117.1 MG MILLIGRAM(S) EVERY 2 WEEK
     Route: 048
     Dates: start: 20140128, end: 20140210
  17. BEVACIZUMAB [Suspect]
     Active Substance: BEVACIZUMAB
     Indication: Product used for unknown indication
     Dosage: 1000 MG?DATE OF MOST RECENT DOSE PRIOR TO THE EVENT: 11/MAR/2014
     Route: 042
     Dates: start: 20140311
  18. AVASTIN [Suspect]
     Active Substance: BEVACIZUMAB
     Indication: Breast cancer
     Dosage: 1000 MG?DAILY DOSE: 15 MG/M2 MILLIGRAM(S)/SQ. METER EVERY 3 WEEK
     Route: 042
     Dates: start: 20140128, end: 20140128

REACTIONS (1)
  - Hypertensive crisis [Recovered/Resolved]

NARRATIVE: CASE EVENT DATE: 20140313
